FAERS Safety Report 21859688 (Version 2)
Quarter: 2023Q1

REPORT INFORMATION
  Report Type: Report from Study
  Country: FR (occurrence: FR)
  Receive Date: 20230113
  Receipt Date: 20230125
  Transmission Date: 20230417
  Serious: Yes (Hospitalization)
  Sender: FDA-Public Use
  Company Number: FR-SA-SAC20230109001234

PATIENT
  Age: 59 Year
  Sex: Male
  Weight: 84 kg

DRUGS (10)
  1. ISATUXIMAB [Suspect]
     Active Substance: ISATUXIMAB
     Indication: Plasma cell myeloma
     Dosage: 850 MG, QM
     Route: 042
     Dates: start: 20221213, end: 20221213
  2. ISATUXIMAB [Suspect]
     Active Substance: ISATUXIMAB
     Dosage: 850 MG, QM
     Route: 042
     Dates: start: 20220114, end: 20220114
  3. CARFILZOMIB [Suspect]
     Active Substance: CARFILZOMIB
     Indication: Plasma cell myeloma
     Dosage: 114 MG (3 WEEKS ONLY)
     Route: 042
     Dates: start: 20221129, end: 20221129
  4. CARFILZOMIB [Suspect]
     Active Substance: CARFILZOMIB
     Dosage: 114 MG (3 WEEKS ONLY)
     Route: 042
     Dates: start: 20220114, end: 20220114
  5. LENALIDOMIDE [Suspect]
     Active Substance: LENALIDOMIDE
     Indication: Plasma cell myeloma
     Dosage: 25 MG (21 DAYS AND ON 28)
     Route: 048
     Dates: start: 20221205, end: 20221205
  6. LENALIDOMIDE [Suspect]
     Active Substance: LENALIDOMIDE
     Dosage: 25 MG (21 DAYS AND ON 28)
     Route: 048
     Dates: start: 20220114, end: 20220114
  7. DEXAMETHASONE [Suspect]
     Active Substance: DEXAMETHASONE
     Indication: Plasma cell myeloma
     Dosage: 40 MG, QW
     Route: 048
     Dates: start: 20221206, end: 20221206
  8. DEXAMETHASONE [Suspect]
     Active Substance: DEXAMETHASONE
     Dosage: 40 MG, QW
     Route: 048
     Dates: start: 20220114, end: 20220114
  9. IBERDOMIDE [Suspect]
     Active Substance: IBERDOMIDE
     Indication: Plasma cell myeloma
     Dosage: 1 MG
     Route: 048
     Dates: start: 20230105, end: 20230105
  10. IBERDOMIDE [Suspect]
     Active Substance: IBERDOMIDE
     Dosage: 1 MG
     Route: 048
     Dates: start: 20221213, end: 20221213

REACTIONS (1)
  - Lung disorder [Recovered/Resolved]

NARRATIVE: CASE EVENT DATE: 20230105
